FAERS Safety Report 16645171 (Version 2)
Quarter: 2019Q3

REPORT INFORMATION
  Report Type: Report from Study
  Country: KR (occurrence: KR)
  Receive Date: 20190729
  Receipt Date: 20190910
  Transmission Date: 20191004
  Serious: Yes (Hospitalization, Other)
  Sender: FDA-Public Use
  Company Number: KR-TAKEDA-2019TUS038608

PATIENT
  Age: 13 Year
  Sex: Female
  Weight: 42.1 kg

DRUGS (15)
  1. ERDOSTEINE [Concomitant]
     Active Substance: ERDOSTEINE
     Indication: DIZZINESS
     Dosage: UNK
     Route: 048
     Dates: start: 20190514, end: 20190514
  2. MELATONIN [Concomitant]
     Active Substance: MELATONIN
     Dosage: UNK
     Route: 048
     Dates: start: 20190403, end: 20190404
  3. DEXTROSE. [Concomitant]
     Active Substance: DEXTROSE
     Indication: DIZZINESS
     Dosage: UNK
     Route: 042
     Dates: start: 20190514, end: 20190514
  4. VORTIOXETINE. [Suspect]
     Active Substance: VORTIOXETINE
     Indication: MAJOR DEPRESSION
     Dosage: UNK
     Route: 048
     Dates: start: 20190321, end: 20190611
  5. MELATONIN [Concomitant]
     Active Substance: MELATONIN
     Dosage: UNK
     Route: 048
     Dates: start: 20190421, end: 20190421
  6. DEXAMETHASONE. [Concomitant]
     Active Substance: DEXAMETHASONE
     Indication: DIZZINESS
     Dosage: UNK
     Route: 042
     Dates: start: 20190514, end: 20190514
  7. METHYLPHENIDATE. [Concomitant]
     Active Substance: METHYLPHENIDATE
     Indication: ATTENTION DEFICIT/HYPERACTIVITY DISORDER
     Dosage: UNK
     Route: 048
     Dates: start: 20181013
  8. ACETAMINOPHEN. [Concomitant]
     Active Substance: ACETAMINOPHEN
     Indication: DIZZINESS
     Dosage: UNK
     Route: 048
     Dates: start: 20190514, end: 20190514
  9. MELATONIN [Concomitant]
     Active Substance: MELATONIN
     Indication: INSOMNIA
     Dosage: UNK
     Route: 048
     Dates: start: 20190329, end: 20190329
  10. MELATONIN [Concomitant]
     Active Substance: MELATONIN
     Dosage: UNK
     Route: 048
     Dates: start: 20190331, end: 20190331
  11. MELATONIN [Concomitant]
     Active Substance: MELATONIN
     Dosage: UNK
     Route: 048
     Dates: start: 20190512, end: 20190512
  12. MELATONIN [Concomitant]
     Active Substance: MELATONIN
     Dosage: UNK
     Route: 048
     Dates: start: 20190407, end: 20190407
  13. MELATONIN [Concomitant]
     Active Substance: MELATONIN
     Dosage: UNK
     Route: 048
     Dates: start: 20190417, end: 20190417
  14. REBAMIPIDE [Concomitant]
     Active Substance: REBAMIPIDE
     Indication: DIZZINESS
     Dosage: UNK
     Route: 048
     Dates: start: 20190514, end: 20190514
  15. GLYCINE MAX OIL [Concomitant]
     Indication: DIZZINESS
     Dosage: UNK
     Route: 042
     Dates: start: 20190514, end: 20190514

REACTIONS (1)
  - Psychogenic seizure [Recovered/Resolved]

NARRATIVE: CASE EVENT DATE: 20190610
